FAERS Safety Report 18062034 (Version 1)
Quarter: 2020Q3

REPORT INFORMATION
  Report Type: Report from Study
  Country: CA (occurrence: CA)
  Receive Date: 20200724
  Receipt Date: 20200724
  Transmission Date: 20201103
  Serious: Yes (Other)
  Sender: FDA-Public Use
  Company Number: CA-ALEXION-A202003851

PATIENT
  Age: 62 Year
  Sex: Female

DRUGS (5)
  1. SOLIRIS [Suspect]
     Active Substance: ECULIZUMAB
     Dosage: 1200 MG, Q2W
     Route: 042
     Dates: start: 20200128
  2. METFORMIN [Concomitant]
     Active Substance: METFORMIN HYDROCHLORIDE
     Indication: PRODUCT USED FOR UNKNOWN INDICATION
     Dosage: UNK
     Route: 065
  3. SOLIRIS [Suspect]
     Active Substance: ECULIZUMAB
     Dosage: 1200 MG, Q2W
     Route: 042
     Dates: start: 20200128
  4. CORTISONE [Concomitant]
     Active Substance: CORTISONE
     Indication: PRODUCT USED FOR UNKNOWN INDICATION
     Dosage: INJECTION TO KNEES
     Route: 065
     Dates: start: 20200524
  5. SOLIRIS [Suspect]
     Active Substance: ECULIZUMAB
     Indication: MYASTHENIA GRAVIS
     Dosage: 900 MG, QW
     Route: 042
     Dates: start: 20191212, end: 20200113

REACTIONS (40)
  - Frequent bowel movements [Not Recovered/Not Resolved]
  - Gingival discolouration [Unknown]
  - Dysphonia [Not Recovered/Not Resolved]
  - Nausea [Not Recovered/Not Resolved]
  - Taste disorder [Unknown]
  - Dyspnoea exertional [Not Recovered/Not Resolved]
  - Crying [Unknown]
  - Increased bronchial secretion [Not Recovered/Not Resolved]
  - Hyperhidrosis [Not Recovered/Not Resolved]
  - Cough [Not Recovered/Not Resolved]
  - Infection [Unknown]
  - Influenza [Unknown]
  - Infusion related reaction [Unknown]
  - Eructation [Not Recovered/Not Resolved]
  - Blood pressure increased [Not Recovered/Not Resolved]
  - Headache [Not Recovered/Not Resolved]
  - Arthralgia [Not Recovered/Not Resolved]
  - Influenza like illness [Not Recovered/Not Resolved]
  - Increased upper airway secretion [Not Recovered/Not Resolved]
  - Dry mouth [Not Recovered/Not Resolved]
  - Feeling cold [Not Recovered/Not Resolved]
  - Eyelid irritation [Not Recovered/Not Resolved]
  - Sputum retention [Unknown]
  - Asthenia [Not Recovered/Not Resolved]
  - Fatigue [Not Recovered/Not Resolved]
  - Nasopharyngitis [Not Recovered/Not Resolved]
  - Renal neoplasm [Not Recovered/Not Resolved]
  - Migraine [Not Recovered/Not Resolved]
  - Nasal congestion [Not Recovered/Not Resolved]
  - Dyspnoea [Recovering/Resolving]
  - Abdominal pain upper [Not Recovered/Not Resolved]
  - Mastication disorder [Not Recovered/Not Resolved]
  - Poor venous access [Not Recovered/Not Resolved]
  - Ocular discomfort [Not Recovered/Not Resolved]
  - Back pain [Not Recovered/Not Resolved]
  - Decreased appetite [Not Recovered/Not Resolved]
  - Pain in extremity [Recovered/Resolved]
  - Sleep disorder [Not Recovered/Not Resolved]
  - Vein collapse [Recovered/Resolved]
  - Diarrhoea [Not Recovered/Not Resolved]

NARRATIVE: CASE EVENT DATE: 202004
